FAERS Safety Report 7517901-8 (Version None)
Quarter: 2011Q2

REPORT INFORMATION
  Report Type: 
  Country: None (occurrence: None)
  Receive Date: 20110527
  Receipt Date: 20110527
  Transmission Date: 20111010
  Serious: Yes (Other)
  Sender: FDA-Public Use
  Company Number: None

PATIENT
  Age: 45 Year
  Sex: Female
  Weight: 79.3795 kg

DRUGS (1)
  1. CYMBALTA [Suspect]
     Indication: DEPRESSION

REACTIONS (6)
  - HEADACHE [None]
  - MANIA [None]
  - PERSONALITY CHANGE [None]
  - WITHDRAWAL SYNDROME [None]
  - NAUSEA [None]
  - HYPERHIDROSIS [None]
